FAERS Safety Report 9451171 (Version 1)
Quarter: 2013Q3

REPORT INFORMATION
  Report Type: Spontaneous
  Country: FR (occurrence: FR)
  Receive Date: 20130809
  Receipt Date: 20130809
  Transmission Date: 20140515
  Serious: Yes (Hospitalization, Other)
  Sender: FDA-Public Use
  Company Number: FR-PFIZER INC-2013230781

PATIENT
  Age: 79 Year
  Sex: Male

DRUGS (14)
  1. TRIATEC [Suspect]
     Indication: CARDIOVASCULAR EVENT PROPHYLAXIS
     Dosage: 5 MG, DAILY
     Route: 048
     Dates: start: 20130603, end: 20130612
  2. ATARAX [Concomitant]
     Indication: ANXIETY
     Dosage: UNK
     Dates: start: 20130604, end: 20130611
  3. DAKTARIN [Concomitant]
     Dosage: UNK
     Dates: start: 20130620, end: 20130706
  4. SOLUPRED [Concomitant]
     Dosage: UNK
     Dates: start: 20130606, end: 20130610
  5. SERESTA [Concomitant]
     Indication: ANXIETY
     Dosage: UNK
     Dates: start: 201305
  6. TAHOR [Concomitant]
     Indication: CARDIOVASCULAR EVENT PROPHYLAXIS
     Dosage: UNK
     Dates: start: 201305
  7. DEXERYL ^PIERRE FABRE^ [Concomitant]
     Dosage: UNK
  8. ACTILYSE [Concomitant]
     Dosage: UNK
     Dates: start: 20130530, end: 20130530
  9. PRINCI-B [Concomitant]
     Dosage: UNK
     Dates: start: 201305
  10. KARDEGIC [Concomitant]
     Indication: CARDIOVASCULAR EVENT PROPHYLAXIS
     Dosage: UNK
     Dates: start: 201305
  11. AMLODIPINE [Concomitant]
     Dosage: UNK
     Dates: start: 201305
  12. THERALENE [Concomitant]
     Indication: INSOMNIA
     Dosage: UNK
     Dates: start: 201305
  13. DAFALGAN [Concomitant]
     Indication: PAIN
     Dosage: UNK
     Dates: start: 201305
  14. RISPERDAL [Concomitant]
     Indication: ABNORMAL BEHAVIOUR
     Dosage: UNK
     Dates: start: 20130607, end: 20130614

REACTIONS (3)
  - Renal failure acute [Not Recovered/Not Resolved]
  - C-reactive protein increased [Unknown]
  - Gamma-glutamyltransferase increased [Unknown]
